FAERS Safety Report 7674424-3 (Version None)
Quarter: 2011Q3

REPORT INFORMATION
  Report Type: 
  Country: None (occurrence: None)
  Receive Date: 20110810
  Receipt Date: 20110808
  Transmission Date: 20111222
  Serious: Yes (Other)
  Sender: FDA-Public Use
  Company Number: US-PFIZER INC-2011164652

PATIENT
  Sex: Male
  Weight: 75.737 kg

DRUGS (5)
  1. DILANTIN [Interacting]
     Dosage: 200 MG MORNING, 100 MG AFTERNOON, 200 MG NIGHT
     Route: 048
     Dates: end: 20110101
  2. DEPAKOTE [Interacting]
     Indication: GRAND MAL CONVULSION
     Dosage: 500 MG TWO TABLETS, ALTERNATE DAY
     Route: 048
     Dates: start: 20050101, end: 20110101
  3. DILANTIN [Interacting]
     Indication: GRAND MAL CONVULSION
     Dosage: 200 MG, 2X/DAY
     Route: 048
     Dates: start: 19890901
  4. DEPAKOTE [Interacting]
     Dosage: 500 MG THREE TABLETS, ALTERNATE DAY
     Route: 048
     Dates: start: 20050101, end: 20110101
  5. PHENYTOIN [Suspect]
     Dosage: UNK

REACTIONS (4)
  - CONVULSION [None]
  - ANTICONVULSANT DRUG LEVEL INCREASED [None]
  - DRUG INTERACTION [None]
  - SPEECH DISORDER [None]
